FAERS Safety Report 4548749-4 (Version None)
Quarter: 2005Q1

REPORT INFORMATION
  Report Type: 
  Country: None (occurrence: None)
  Receive Date: 20050107
  Receipt Date: 20050107
  Transmission Date: 20050727
  Serious: Yes (Hospitalization)
  Sender: FDA-Public Use
  Company Number: None

PATIENT
  Sex: Male
  Weight: 81.6475 kg

DRUGS (1)
  1. ALDESLEUKIN -IL-2-   22 MILLION INTERNATIONAL UNITS  CHIRON [Suspect]
     Indication: MALIGNANT MELANOMA
     Dosage: 50  1 TIME INTRAVENOUS
     Route: 042
     Dates: start: 20041216, end: 20041217

REACTIONS (3)
  - ANTICONVULSANT DRUG LEVEL BELOW THERAPEUTIC [None]
  - DRUG LEVEL BELOW THERAPEUTIC [None]
  - GRAND MAL CONVULSION [None]
